FAERS Safety Report 9674097 (Version 2)
Quarter: 2013Q4

REPORT INFORMATION
  Report Type: Spontaneous
  Country: US (occurrence: US)
  Receive Date: 20131106
  Receipt Date: 20131106
  Transmission Date: 20140711
  Serious: No
  Sender: FDA-Public Use
  Company Number: US-AMGEN-USASP2013068561

PATIENT
  Age: 54 Year
  Sex: Female
  Weight: 102.49 kg

DRUGS (11)
  1. ENBREL [Suspect]
     Indication: ANKYLOSING SPONDYLITIS
     Dosage: 50 MG, QWK
     Route: 065
     Dates: start: 201307, end: 201309
  2. FEMHRT [Concomitant]
     Dosage: 0.5, 25 DAILY
     Route: 048
  3. TRAZODONE [Concomitant]
     Dosage: 50 UNK, QD
     Route: 048
  4. ASA [Concomitant]
     Dosage: 81 UNK, QD
     Route: 048
  5. NEURONTIN [Concomitant]
     Dosage: 600 UNK, TID
     Route: 048
  6. CYMBALTA [Concomitant]
     Dosage: 120 UNK, QD
     Route: 048
  7. ATENOLOL [Concomitant]
     Dosage: 50 MG, BID
     Route: 048
  8. ATORVASTATIN [Concomitant]
     Dosage: 10 MG, QD
     Route: 048
  9. HYDROCHLOROTHIAZIDE [Concomitant]
     Dosage: 25 MG, QD
     Route: 048
  10. ALEVE [Concomitant]
     Dosage: 220 MG, QD
     Route: 048
  11. CHLOR-TRIMETON [Concomitant]
     Dosage: UNK

REACTIONS (11)
  - Oropharyngeal pain [Recovered/Resolved]
  - Nasal congestion [Recovered/Resolved]
  - Headache [Recovered/Resolved]
  - Nausea [Recovered/Resolved]
  - Dizziness [Recovered/Resolved]
  - Feeling hot [Recovered/Resolved]
  - Erythema [Recovered/Resolved]
  - Swelling face [Recovered/Resolved]
  - Injection site swelling [Not Recovered/Not Resolved]
  - Injection site pain [Not Recovered/Not Resolved]
  - Injection site erythema [Not Recovered/Not Resolved]
